FAERS Safety Report 4747793-1 (Version None)
Quarter: 2005Q3

REPORT INFORMATION
  Report Type: 
  Country: None (occurrence: None)
  Receive Date: 20050817
  Receipt Date: 20050817
  Transmission Date: 20060218
  Serious: No
  Sender: FDA-Public Use
  Company Number: None

PATIENT
  Sex: Male
  Weight: 89 kg

DRUGS (2)
  1. CITALOPRAM    20MG [Suspect]
     Indication: AGITATION
     Dosage: 20MG   BID   ORAL
     Route: 048
     Dates: start: 20050501, end: 20050603
  2. CITALOPRAM    20MG [Suspect]
     Indication: DEPRESSION
     Dosage: 20MG   BID   ORAL
     Route: 048
     Dates: start: 20050501, end: 20050603

REACTIONS (1)
  - SUICIDAL IDEATION [None]
